FAERS Safety Report 20981231 (Version 2)
Quarter: 2022Q2

REPORT INFORMATION
  Report Type: Spontaneous
  Country: US (occurrence: US)
  Receive Date: 20220620
  Receipt Date: 20220629
  Transmission Date: 20220720
  Serious: Yes (Other)
  Sender: FDA-Public Use
  Company Number: US-BIOCODEX2-2022000245

PATIENT

DRUGS (7)
  1. DIACOMIT [Suspect]
     Active Substance: STIRIPENTOL
     Indication: Severe myoclonic epilepsy of infancy
     Dosage: 6ML TWICE A DAY
     Route: 065
     Dates: start: 20220304
  2. DIACOMIT [Suspect]
     Active Substance: STIRIPENTOL
     Dosage: 7ML (DISSOLVE 1 PACKET OF 250MG IN 10ML OF WATER) TWICE A DAY.
     Route: 065
  3. DIACOMIT [Suspect]
     Active Substance: STIRIPENTOL
     Dosage: 7ML TWICE A DAY.
     Route: 065
  4. ONFI [Concomitant]
     Active Substance: CLOBAZAM
     Indication: Severe myoclonic epilepsy of infancy
     Dosage: UNK
     Route: 065
  5. KEPPRA [Concomitant]
     Active Substance: LEVETIRACETAM
     Indication: Product used for unknown indication
     Dosage: UNK
     Route: 065
  6. LACTOSE [Concomitant]
     Active Substance: LACTOSE
     Indication: Product used for unknown indication
     Dosage: UNK
  7. PHENOBARBITAL [Concomitant]
     Active Substance: PHENOBARBITAL
     Indication: Product used for unknown indication
     Dosage: UNK

REACTIONS (3)
  - Seizure [Unknown]
  - Wrong technique in product usage process [Unknown]
  - Multiple use of single-use product [Unknown]
